FAERS Safety Report 4923429-1 (Version None)
Quarter: 2006Q1

REPORT INFORMATION
  Report Type: 
  Country: None (occurrence: None)
  Receive Date: 20060227
  Receipt Date: 20060215
  Transmission Date: 20060701
  Serious: Yes (Death, Life-Threatening)
  Sender: FDA-Public Use
  Company Number: FR-GILEAD-2006-0009240

PATIENT
  Sex: Male

DRUGS (6)
  1. EMTRIVA [Suspect]
     Indication: HIV INFECTION
     Route: 048
     Dates: start: 20050908, end: 20051107
  2. VIREAD [Suspect]
     Indication: HIV INFECTION
     Route: 048
     Dates: start: 20050908, end: 20051107
  3. NORVIR [Suspect]
     Indication: HIV INFECTION
     Route: 048
     Dates: start: 20050908, end: 20051107
  4. REYATAZ [Suspect]
     Indication: HIV INFECTION
     Route: 048
     Dates: start: 20050908, end: 20051107
  5. BACTRIM [Suspect]
     Indication: PROPHYLAXIS
     Route: 048
     Dates: start: 20050908, end: 20051107
  6. ELISOR [Suspect]
     Indication: ESSENTIAL HYPERTENSION
     Route: 048
     Dates: end: 20051107

REACTIONS (9)
  - ANGINA UNSTABLE [None]
  - DIARRHOEA [None]
  - HEPATIC FAILURE [None]
  - INFLAMMATION [None]
  - LYMPHADENOPATHY [None]
  - MYOCARDIAL INFARCTION [None]
  - NAUSEA [None]
  - PYREXIA [None]
  - VOMITING [None]
